FAERS Safety Report 6989696-8 (Version None)
Quarter: 2010Q3

REPORT INFORMATION
  Report Type: 
  Country: None (occurrence: None)
  Receive Date: 20100916
  Receipt Date: 20100202
  Transmission Date: 20110219
  Serious: Yes (Hospitalization, Other)
  Sender: FDA-Public Use
  Company Number: US-PFIZER INC-2010016429

PATIENT
  Sex: Female

DRUGS (17)
  1. LYRICA [Suspect]
     Indication: NEUROPATHY PERIPHERAL
     Dosage: 50 MG, 1X/DAY
     Route: 048
     Dates: start: 20081001
  2. LYRICA [Suspect]
     Dosage: 100 MG, 2X/DAY
     Route: 048
     Dates: end: 20100101
  3. GABAPENTIN [Suspect]
     Indication: NEUROPATHY PERIPHERAL
     Dosage: 300 MG, 3X/DAY
     Route: 048
     Dates: start: 20100101
  4. COUMADIN [Suspect]
     Dosage: UNK
  5. VALSARTAN [Concomitant]
     Indication: HYPERTENSION
     Dosage: UNK
  6. CLONIDINE [Concomitant]
     Indication: HYPERTENSION
     Dosage: UNK
  7. COREG [Concomitant]
     Dosage: UNK
  8. AMBIEN [Concomitant]
     Dosage: UNK
  9. FISH OIL [Concomitant]
     Dosage: UNK
  10. MAGNESIUM [Concomitant]
     Dosage: UNK
  11. VITAMINS [Concomitant]
     Dosage: UNK
  12. MS CONTIN [Concomitant]
     Dosage: UNK
  13. SOMA [Concomitant]
     Dosage: UNK
  14. HYDROCODONE [Concomitant]
     Dosage: UNK
  15. NEXIUM [Concomitant]
     Dosage: UNK
  16. CARAFATE [Concomitant]
     Dosage: UNK
  17. THYROID TAB [Concomitant]
     Dosage: UNK

REACTIONS (8)
  - COELIAC DISEASE [None]
  - DRUG INEFFECTIVE [None]
  - HAEMORRHAGE [None]
  - INTERNATIONAL NORMALISED RATIO INCREASED [None]
  - OVERDOSE [None]
  - PARAESTHESIA [None]
  - PERIPHERAL COLDNESS [None]
  - WEIGHT DECREASED [None]
